FAERS Safety Report 6358293-X (Version None)
Quarter: 2009Q3

REPORT INFORMATION
  Report Type: 
  Country: None (occurrence: None)
  Receive Date: 20090916
  Receipt Date: 20090908
  Transmission Date: 20100115
  Serious: Yes (Other)
  Sender: FDA-Public Use
  Company Number: PHHY2009MX15673

PATIENT
  Age: 76 Year
  Sex: Male

DRUGS (5)
  1. DIOVAN [Suspect]
     Indication: HYPERTENSION
     Dosage: 160 MG, QD
     Dates: start: 20050801
  2. PRAVASTATIN [Concomitant]
  3. ASPIRIN [Concomitant]
  4. DICLOFENAC SODIUM [Concomitant]
  5. LOSARTAN [Concomitant]

REACTIONS (8)
  - AORTIC VALVE SCLEROSIS [None]
  - ARTERIAL STENOSIS [None]
  - ARTERIOSCLEROSIS CORONARY ARTERY [None]
  - ISCHAEMIA [None]
  - MITRAL VALVE INCOMPETENCE [None]
  - MYOCARDIAL INFARCTION [None]
  - TRICUSPID VALVE INCOMPETENCE [None]
  - VENTRICULAR HYPERTROPHY [None]
